FAERS Safety Report 6856298-3 (Version None)
Quarter: 2010Q3

REPORT INFORMATION
  Report Type: 
  Country: None (occurrence: None)
  Receive Date: 20100719
  Receipt Date: 20100713
  Transmission Date: 20110219
  Serious: Yes (Death)
  Sender: FDA-Public Use
  Company Number: PHHY2010US46417

PATIENT
  Sex: Male

DRUGS (1)
  1. GLEEVEC [Suspect]
     Indication: LYMPHOMA
     Dosage: 400 MG, QD
     Route: 048
     Dates: start: 20100618

REACTIONS (1)
  - DEATH [None]
